FAERS Safety Report 9628104 (Version 2)
Quarter: 2013Q4

REPORT INFORMATION
  Report Type: Spontaneous
  Country: US (occurrence: US)
  Receive Date: 20131017
  Receipt Date: 20131107
  Transmission Date: 20140711
  Serious: No
  Sender: FDA-Public Use
  Company Number: US-009507513-1310USA007502

PATIENT
  Sex: Female

DRUGS (2)
  1. IMPLANON [Suspect]
     Dosage: UNK
     Route: 059
  2. NEXPLANON [Suspect]
     Route: 059

REACTIONS (2)
  - Device kink [Unknown]
  - Device breakage [Unknown]
